FAERS Safety Report 25502418 (Version 4)
Quarter: 2025Q3

REPORT INFORMATION
  Report Type: Report from Study
  Country: CL (occurrence: CL)
  Receive Date: 20250702
  Receipt Date: 20250911
  Transmission Date: 20251021
  Serious: Yes (Hospitalization, Other)
  Sender: NOVO NORDISK
  Company Number: CL-NOVOPROD-1420979

PATIENT
  Age: 16 Year
  Sex: Female
  Weight: 71 kg

DRUGS (5)
  1. SAXENDA [Suspect]
     Active Substance: LIRAGLUTIDE
     Indication: Obesity
     Route: 058
     Dates: start: 20250411
  2. SAXENDA [Suspect]
     Active Substance: LIRAGLUTIDE
     Indication: Insulin resistance
     Route: 058
     Dates: start: 20250503
  3. SAXENDA [Suspect]
     Active Substance: LIRAGLUTIDE
     Route: 058
     Dates: start: 20250730, end: 2025
  4. SAXENDA [Suspect]
     Active Substance: LIRAGLUTIDE
     Route: 058
     Dates: end: 20250729
  5. SAXENDA [Suspect]
     Active Substance: LIRAGLUTIDE
     Indication: Hepatic steatosis
     Route: 058
     Dates: start: 20250619, end: 20250622

REACTIONS (10)
  - Retching [Recovered/Resolved]
  - Cholelithiasis [Not Recovered/Not Resolved]
  - Pancreatitis [Unknown]
  - Dyspnoea [Recovered/Resolved]
  - Pain [Recovered/Resolved]
  - Epigastric discomfort [Recovered/Resolved]
  - Nausea [Recovered/Resolved]
  - Vomiting [Recovered/Resolved]
  - Abdominal discomfort [Recovered/Resolved]
  - Abdominal pain upper [Recovered/Resolved]

NARRATIVE: CASE EVENT DATE: 20250503
